FAERS Safety Report 6200964-X (Version None)
Quarter: 2009Q2

REPORT INFORMATION
  Report Type: 
  Country: None (occurrence: None)
  Receive Date: 20090525
  Receipt Date: 20090513
  Transmission Date: 20091009
  Serious: Yes (Life-Threatening, Hospitalization)
  Sender: FDA-Public Use
  Company Number: TW-RANBAXY-2009RR-23764

PATIENT
  Age: 56 Year
  Sex: Female

DRUGS (2)
  1. METFORMIN HCL [Suspect]
     Indication: SUICIDE ATTEMPT
     Dosage: 30000 MG, UNK
     Route: 048
  2. ZOLPIDEM TARTRATE [Suspect]
     Indication: SUICIDE ATTEMPT
     Dosage: 3000 MG, UNK
     Route: 048

REACTIONS (3)
  - LACTIC ACIDOSIS [None]
  - OVERDOSE [None]
  - RESPIRATORY ACIDOSIS [None]
